FAERS Safety Report 24829702 (Version 1)
Quarter: 2025Q1

REPORT INFORMATION
  Report Type: Spontaneous
  Country: US (occurrence: US)
  Receive Date: 20250110
  Receipt Date: 20250110
  Transmission Date: 20250409
  Serious: No
  Sender: ROCHE
  Company Number: US-ROCHE-10000173365

PATIENT
  Age: 40 Year
  Sex: Female
  Weight: 95.25 kg

DRUGS (3)
  1. XOLAIR [Suspect]
     Active Substance: OMALIZUMAB
     Indication: Urticaria
     Dosage: DOSE 300MG COMPRISED OF TWO 150MG XOLAIR PFS
     Route: 058
     Dates: start: 2022
  2. XOLAIR [Suspect]
     Active Substance: OMALIZUMAB
     Dosage: ONGOING
     Route: 058
     Dates: start: 202408
  3. MINOXIDIL [Concomitant]
     Active Substance: MINOXIDIL
     Indication: Alopecia
     Route: 048
     Dates: start: 20241018

REACTIONS (4)
  - Underdose [Unknown]
  - Alopecia [Recovering/Resolving]
  - Device dislocation [Unknown]
  - Product complaint [Unknown]

NARRATIVE: CASE EVENT DATE: 20240101
